FAERS Safety Report 8949515 (Version 1)
Quarter: 2012Q4

REPORT INFORMATION
  Report Type: 
  Country: GB (occurrence: GB)
  Receive Date: 20121206
  Receipt Date: 20121206
  Transmission Date: 20130627
  Serious: Yes (Hospitalization)
  Sender: FDA-Public Use
  Company Number: GB-AMGEN-GBRCT2012077928

PATIENT
  Age: 69 Year
  Sex: Female
  Weight: 70.6 kg

DRUGS (7)
  1. PEGFILGRASTIM [Suspect]
     Indication: BREAST CANCER
  2. CAPECITABINE [Concomitant]
     Indication: BREAST CANCER
     Dosage: 1250 mg/m2, UNK
     Route: 048
  3. EPIRUBICIN [Concomitant]
     Indication: BREAST CANCER
     Dosage: 100 mg/m2, q2wk
     Route: 042
     Dates: start: 20081022
  4. DOMPERIDONE [Concomitant]
     Dosage: 20 mg, prn
  5. BUCCASTEM [Concomitant]
     Dosage: 6 mg, prn
  6. CITALOPRAM [Concomitant]
     Dosage: 10 mg, UNK
  7. METFORMIN [Concomitant]
     Dosage: 1 g, bid

REACTIONS (2)
  - Dyspnoea exertional [Unknown]
  - Dyspnoea [Recovering/Resolving]
